FAERS Safety Report 5303271-2 (Version None)
Quarter: 2007Q2

REPORT INFORMATION
  Report Type: 
  Country: None (occurrence: None)
  Receive Date: 20070420
  Receipt Date: 20070413
  Transmission Date: 20071010
  Serious: Yes (Life-Threatening)
  Sender: FDA-Public Use
  Company Number: BR-GLAXOSMITHKLINE-A0647250A

PATIENT
  Age: 20 Year
  Sex: Female

DRUGS (2)
  1. CLAVULIN [Suspect]
     Indication: SELF-MEDICATION
     Route: 065
     Dates: start: 20070412, end: 20070412
  2. DIPYRONE TAB [Concomitant]
     Dates: start: 20070412

REACTIONS (2)
  - DIARRHOEA [None]
  - OVERDOSE [None]
